FAERS Safety Report 15289135 (Version 1)
Quarter: 2018Q3

REPORT INFORMATION
  Report Type: Spontaneous
  Country: US (occurrence: US)
  Receive Date: 20180803
  Receipt Date: 20180803
  Transmission Date: 20181010
  Serious: No
  Sender: FDA-Public Use
  Company Number: None

PATIENT
  Age: 62 Year
  Sex: Male
  Weight: 99 kg

DRUGS (12)
  1. LISINOPRIL. [Concomitant]
     Active Substance: LISINOPRIL
  2. METOPROLOL. [Concomitant]
     Active Substance: METOPROLOL
  3. MELATONIN [Concomitant]
     Active Substance: MELATONIN
  4. COQ 10 [Concomitant]
     Active Substance: UBIDECARENONE
  5. OMEPRAZOLE. [Concomitant]
     Active Substance: OMEPRAZOLE
  6. ASA [Concomitant]
     Active Substance: ASPIRIN
  7. MULTIVITAMIN [Concomitant]
     Active Substance: VITAMINS
  8. LIPITOR [Suspect]
     Active Substance: ATORVASTATIN CALCIUM
     Indication: BLOOD CHOLESTEROL INCREASED
     Dosage: ?          QUANTITY:1 DF DOSAGE FORM;?
     Route: 048
     Dates: start: 20180627, end: 20180722
  9. EFFIENT [Concomitant]
     Active Substance: PRASUGREL HYDROCHLORIDE
  10. CINNAMON. [Concomitant]
     Active Substance: CINNAMON
  11. TESTOSTERONE. [Concomitant]
     Active Substance: TESTOSTERONE
  12. CALCIUM [Concomitant]
     Active Substance: CALCIUM

REACTIONS (9)
  - Muscle spasms [None]
  - Infection [None]
  - Myalgia [None]
  - Pyrexia [None]
  - Chills [None]
  - Night sweats [None]
  - Headache [None]
  - Decreased appetite [None]
  - Nausea [None]

NARRATIVE: CASE EVENT DATE: 20180722
